FAERS Safety Report 17963178 (Version 3)
Quarter: 2020Q3

REPORT INFORMATION
  Report Type: Spontaneous
  Country: DK (occurrence: DK)
  Receive Date: 20200630
  Receipt Date: 20200724
  Transmission Date: 20201103
  Serious: Yes (Hospitalization)
  Sender: FDA-Public Use
  Company Number: DK-TEVA-2020-DK-1792718

PATIENT
  Age: 48 Year
  Sex: Female
  Weight: 64 kg

DRUGS (1)
  1. ISOTRETINOIN ^TEVA^ [Suspect]
     Active Substance: ISOTRETINOIN
     Indication: ACNE
     Dosage: UNIT DOSE: 40 MG
     Route: 048
     Dates: start: 201806, end: 202002

REACTIONS (11)
  - Dyspnoea [Not Recovered/Not Resolved]
  - Hepatic steatosis [Not Recovered/Not Resolved]
  - Lymphocyte count increased [Unknown]
  - White blood cell count increased [Unknown]
  - Blood glucose decreased [Unknown]
  - Blood creatinine decreased [Unknown]
  - Hepatic pain [Not Recovered/Not Resolved]
  - Hyponatraemia [Unknown]
  - Haemoglobin decreased [Unknown]
  - Hypocalcaemia [Unknown]
  - Blood triglycerides increased [Unknown]

NARRATIVE: CASE EVENT DATE: 20200325
